FAERS Safety Report 17838562 (Version 2)
Quarter: 2021Q3

REPORT INFORMATION
  Report Type: Spontaneous
  Country: DE (occurrence: DE)
  Receive Date: 20200528
  Receipt Date: 20210816
  Transmission Date: 20211014
  Serious: Yes (Death)
  Sender: FDA-Public Use
  Company Number: NVSC2020DE142013

PATIENT
  Sex: Female

DRUGS (4)
  1. FLUOROURACIL. [Suspect]
     Active Substance: FLUOROURACIL
     Indication: BREAST CANCER METASTATIC
     Dosage: UNK (3X DAYS)
     Route: 042
     Dates: start: 201202, end: 201206
  2. CYCLOPHOSPHAMIDE. [Suspect]
     Active Substance: CYCLOPHOSPHAMIDE
     Indication: BREAST CANCER METASTATIC
     Dosage: UNK (3X DAYS)
     Route: 042
     Dates: start: 201202, end: 201206
  3. EPIRUBICIN [Suspect]
     Active Substance: EPIRUBICIN
     Indication: BREAST CANCER METASTATIC
     Dosage: UNK (3X DAYS)
     Route: 042
     Dates: start: 201202, end: 201206
  4. DOCETAXEL. [Suspect]
     Active Substance: DOCETAXEL
     Indication: BREAST CANCER METASTATIC
     Dosage: UNK (3X DAYS)
     Route: 042
     Dates: start: 201202, end: 201206

REACTIONS (2)
  - Breast cancer metastatic [Fatal]
  - Malignant neoplasm progression [Fatal]
